FAERS Safety Report 23190093 (Version 1)
Quarter: 2023Q4

REPORT INFORMATION
  Report Type: Spontaneous
  Country: FR (occurrence: FR)
  Receive Date: 20231116
  Receipt Date: 20231116
  Transmission Date: 20240110
  Serious: Yes (Other)
  Sender: FDA-Public Use
  Company Number: None

PATIENT
  Age: 53 Year
  Sex: Female

DRUGS (1)
  1. LETROZOLE [Suspect]
     Active Substance: LETROZOLE
     Indication: Breast cancer
     Dosage: 1 DOSAGE FORMS DAILY; 1 TAB OF 2.5 MG/D
     Dates: start: 202209

REACTIONS (1)
  - Gout [Not Recovered/Not Resolved]

NARRATIVE: CASE EVENT DATE: 20230208
